FAERS Safety Report 19453884 (Version 1)
Quarter: 2021Q2

REPORT INFORMATION
  Report Type: Spontaneous
  Country: US (occurrence: US)
  Receive Date: 20210623
  Receipt Date: 20210623
  Transmission Date: 20210717
  Serious: No
  Sender: FDA-Public Use
  Company Number: US-009507513-2105USA006429

PATIENT
  Age: 83 Year
  Sex: Female

DRUGS (2)
  1. ENALAPRIL [Concomitant]
     Active Substance: ENALAPRIL
     Dosage: UNK
  2. BELSOMRA [Suspect]
     Active Substance: SUVOREXANT
     Indication: SLEEP DISORDER
     Dosage: 15 MILLIGRAM (ONE TABLET) PER DAY
     Route: 048
     Dates: start: 202104

REACTIONS (2)
  - Blood pressure increased [Not Recovered/Not Resolved]
  - Insomnia [Not Recovered/Not Resolved]

NARRATIVE: CASE EVENT DATE: 20210514
